FAERS Safety Report 20331491 (Version 1)
Quarter: 2022Q1

REPORT INFORMATION
  Report Type: Spontaneous
  Country: US (occurrence: None)
  Receive Date: 20220112
  Receipt Date: 20220112
  Transmission Date: 20220423
  Serious: Yes (unspecified)
  Sender: FDA-Public Use
  Company Number: None

PATIENT
  Age: 27 Year
  Sex: Female
  Weight: 102.5 kg

DRUGS (1)
  1. CASIRIVIMAB\IMDEVIMAB [Suspect]
     Active Substance: CASIRIVIMAB\IMDEVIMAB
     Indication: COVID-19
     Dosage: FREQUENCY : DAILY;?
     Route: 042
     Dates: start: 20211222, end: 20211222

REACTIONS (7)
  - Infusion related reaction [None]
  - Abdominal pain [None]
  - Dyspnoea [None]
  - Chest pain [None]
  - Chest discomfort [None]
  - Erythema [None]
  - Paraesthesia [None]

NARRATIVE: CASE EVENT DATE: 20211222
